FAERS Safety Report 7305488-4 (Version None)
Quarter: 2011Q1

REPORT INFORMATION
  Report Type: 
  Country: None (occurrence: None)
  Receive Date: 20110210
  Receipt Date: 20110128
  Transmission Date: 20110831
  Serious: Yes (Death, Hospitalization)
  Sender: FDA-Public Use
  Company Number: 2011SP000385

PATIENT
  Age: 79 Year
  Sex: Female

DRUGS (8)
  1. ALVESCO [Suspect]
     Indication: ASTHMA
     Dosage: 200 UG;QD;INHALATION
     Route: 055
     Dates: start: 20081028, end: 20081226
  2. FRANDOL [Concomitant]
  3. ONON [Concomitant]
  4. SIGMART [Concomitant]
  5. COROHERSER [Concomitant]
  6. PREDNISOLONE [Concomitant]
  7. PREV MEDS [Concomitant]
  8. LASIX [Concomitant]

REACTIONS (2)
  - CONDITION AGGRAVATED [None]
  - ALLERGIC GRANULOMATOUS ANGIITIS [None]
